FAERS Safety Report 4945348-7 (Version None)
Quarter: 2006Q1

REPORT INFORMATION
  Report Type: 
  Country: None (occurrence: None)
  Receive Date: 20060315
  Receipt Date: 20060315
  Transmission Date: 20060701
  Serious: No
  Sender: FDA-Public Use
  Company Number: None

PATIENT
  Age: 85 Year
  Sex: Male
  Weight: 64 kg

DRUGS (14)
  1. MORPHINE [Suspect]
     Indication: NECK PAIN
     Dosage: 2.5ML PO Q4H
     Route: 048
     Dates: start: 20051026, end: 20051108
  2. MIRTAZAPINE [Concomitant]
  3. SIMVASTATIN [Concomitant]
  4. OMEPRAZOLE [Concomitant]
  5. METOPROLOL [Concomitant]
  6. FELODIPINE [Concomitant]
  7. COLCHICINE [Concomitant]
  8. TRAMADOL HCL [Concomitant]
  9. DIPHENHYDRAMINE [Concomitant]
  10. FERROUS SULFATE TAB [Concomitant]
  11. CALCIUM ACETATE [Concomitant]
  12. ASPIRIN [Concomitant]
  13. APAP TAB [Concomitant]
  14. EPOETIN ALFA [Concomitant]

REACTIONS (3)
  - ABNORMAL DREAMS [None]
  - CONFUSIONAL STATE [None]
  - PRURITUS [None]
